FAERS Safety Report 8511693-1 (Version None)
Quarter: 2012Q3

REPORT INFORMATION
  Report Type: 
  Country: None (occurrence: None)
  Receive Date: 20120710
  Receipt Date: 20120710
  Transmission Date: 20120928
  Serious: Yes (Other)
  Sender: FDA-Public Use
  Company Number: None

PATIENT
  Sex: Female

DRUGS (1)
  1. NEXIUM [Suspect]
     Indication: GASTROOESOPHAGEAL REFLUX DISEASE
     Dosage: ONCE A DAY

REACTIONS (6)
  - BURNING SENSATION [None]
  - FEELING OF BODY TEMPERATURE CHANGE [None]
  - HAIR GROWTH ABNORMAL [None]
  - IMMUNE SYSTEM DISORDER [None]
  - ARTHRITIS [None]
  - DRUG INEFFECTIVE [None]
